FAERS Safety Report 15489411 (Version 4)
Quarter: 2019Q2

REPORT INFORMATION
  Report Type: Spontaneous
  Country: IT (occurrence: IT)
  Receive Date: 20181011
  Receipt Date: 20190529
  Transmission Date: 20190711
  Serious: Yes (Disabling)
  Sender: FDA-Public Use
  Company Number: IT-TEVA-2018-IT-963387

PATIENT
  Age: 84 Year
  Sex: Female

DRUGS (10)
  1. PERIDON [Concomitant]
     Active Substance: DOMPERIDONE
     Route: 048
  2. ACTONEL [Suspect]
     Active Substance: RISEDRONATE SODIUM
     Indication: OSTEOPOROSIS
     Route: 048
     Dates: start: 20020101, end: 20180628
  3. CORDARONE [Concomitant]
     Active Substance: AMIODARONE HYDROCHLORIDE
     Route: 065
  4. FOSTER [Concomitant]
     Active Substance: BECLOMETHASONE\FORMOTEROL
     Indication: ASTHMA
     Route: 065
  5. DIBASE 25.000 U.I./2,5 ML SOLUZIONE ORALE [Concomitant]
     Indication: OSTEOPOROSIS
     Route: 048
  6. MICROSER [Concomitant]
     Active Substance: BETAHISTINE HYDROCHLORIDE
     Route: 065
  7. RIOPAN 80 MG/ML GEL ORALE [Concomitant]
     Route: 048
  8. LEXOTAN [Concomitant]
     Active Substance: BROMAZEPAM
     Indication: ANXIETY
     Route: 065
  9. ARCOXIA [Concomitant]
     Active Substance: ETORICOXIB
     Route: 048
  10. PEPTAZOL [Concomitant]
     Route: 065

REACTIONS (3)
  - Oral cavity fistula [Not Recovered/Not Resolved]
  - Gingivitis [Not Recovered/Not Resolved]
  - Osteonecrosis of jaw [Not Recovered/Not Resolved]

NARRATIVE: CASE EVENT DATE: 20180608
